FAERS Safety Report 10161859 (Version 2)
Quarter: 2014Q2

REPORT INFORMATION
  Report Type: Spontaneous
  Country: CL (occurrence: CL)
  Receive Date: 20140509
  Receipt Date: 20140509
  Transmission Date: 20141212
  Serious: Yes (Hospitalization)
  Sender: FDA-Public Use
  Company Number: CL-JNJFOC-20140408942

PATIENT
  Age: 56 Year
  Sex: Female

DRUGS (3)
  1. XARELTO [Suspect]
     Indication: CEREBROVASCULAR ACCIDENT PROPHYLAXIS
     Route: 048
     Dates: start: 201311
  2. XARELTO [Suspect]
     Indication: ATRIAL FIBRILLATION
     Route: 048
     Dates: start: 201311
  3. SOTALOL [Concomitant]
     Indication: ATRIAL FIBRILLATION
     Route: 065

REACTIONS (4)
  - Melaena [Unknown]
  - Gastritis erosive [Unknown]
  - Abdominal pain [Unknown]
  - Haematocrit decreased [Unknown]
